FAERS Safety Report 17801402 (Version 1)
Quarter: 2020Q2

REPORT INFORMATION
  Report Type: Spontaneous
  Country: US (occurrence: US)
  Receive Date: 20200517
  Receipt Date: 20200517
  Transmission Date: 20200714
  Serious: No
  Sender: FDA-Public Use
  Company Number: None

PATIENT
  Sex: Female

DRUGS (1)
  1. CAPECITABINE 500MG NOVADOZ PHARMACEUTICALS [Suspect]
     Active Substance: CAPECITABINE
     Indication: NEOPLASM MALIGNANT
     Dosage: SEE EVENT
     Route: 048
     Dates: start: 20200417

REACTIONS (4)
  - Agitation [None]
  - Fatigue [None]
  - Anxiety [None]
  - Loss of personal independence in daily activities [None]
